FAERS Safety Report 5715652-3 (Version None)
Quarter: 2008Q2

REPORT INFORMATION
  Report Type: 
  Country: None (occurrence: None)
  Receive Date: 20080423
  Receipt Date: 20080423
  Transmission Date: 20081010
  Serious: No
  Sender: FDA-Public Use
  Company Number: None

PATIENT
  Age: 58 Year
  Sex: Male
  Weight: 59.4212 kg

DRUGS (2)
  1. CISPLATIN [Suspect]
     Indication: SQUAMOUS CELL CARCINOMA
     Dosage: 50MG WEEKLY IV
     Route: 042
     Dates: start: 20050518
  2. CPT-11 50MG/M2 [Suspect]
     Indication: SQUAMOUS CELL CARCINOMA
     Dosage: 85MG WEEKLY IV
     Route: 042
     Dates: start: 20050518

REACTIONS (3)
  - BLOOD CREATININE INCREASED [None]
  - DISEASE PROGRESSION [None]
  - DRUG TOXICITY [None]
